FAERS Safety Report 19449147 (Version 1)
Quarter: 2021Q2

REPORT INFORMATION
  Report Type: Spontaneous
  Country: US (occurrence: US)
  Receive Date: 20210622
  Receipt Date: 20210622
  Transmission Date: 20210717
  Serious: No
  Sender: FDA-Public Use
  Company Number: US-ASTRAZENECA-2021A481260

PATIENT
  Sex: Female
  Weight: 104.3 kg

DRUGS (4)
  1. BYDUREON BCISE [Suspect]
     Active Substance: EXENATIDE
     Indication: DIABETES MELLITUS
     Route: 065
  2. BYETTA [Suspect]
     Active Substance: EXENATIDE
     Indication: DIABETES MELLITUS
     Dosage: TWO TIMES A DAY
     Route: 065
  3. INSULIN [Concomitant]
     Active Substance: INSULIN NOS
  4. TRULICITY [Concomitant]
     Active Substance: DULAGLUTIDE

REACTIONS (3)
  - Eating disorder [Recovering/Resolving]
  - Hyperglycaemia [Recovering/Resolving]
  - Inability to afford medication [Unknown]
